FAERS Safety Report 13416642 (Version 3)
Quarter: 2017Q2

REPORT INFORMATION
  Report Type: Spontaneous
  Country: US (occurrence: US)
  Receive Date: 20170407
  Receipt Date: 20170627
  Transmission Date: 20170830
  Serious: No
  Sender: FDA-Public Use
  Company Number: US-ASTRAZENECA-2017SE35307

PATIENT
  Sex: Female
  Weight: 82.6 kg

DRUGS (1)
  1. SYMLIN [Suspect]
     Active Substance: PRAMLINTIDE ACETATE
     Indication: TYPE 1 DIABETES MELLITUS
     Route: 058

REACTIONS (2)
  - Hypoglycaemia [Unknown]
  - Hypoglycaemia unawareness [Unknown]
